FAERS Safety Report 7719011-3 (Version None)
Quarter: 2011Q3

REPORT INFORMATION
  Report Type: 
  Country: None (occurrence: None)
  Receive Date: 20110830
  Receipt Date: 20110822
  Transmission Date: 20111222
  Serious: Yes (Other)
  Sender: FDA-Public Use
  Company Number: JP-GLAXOSMITHKLINE-B0742416A

PATIENT
  Sex: Female

DRUGS (2)
  1. LORAZEPAM [Concomitant]
     Route: 048
  2. PAXIL [Suspect]
     Indication: PANIC DISORDER
     Dosage: 5MG PER DAY
     Route: 048
     Dates: start: 20110816

REACTIONS (8)
  - VISUAL IMPAIRMENT [None]
  - DEPERSONALISATION [None]
  - LIGAMENT SPRAIN [None]
  - FALL [None]
  - HEADACHE [None]
  - CONVULSION [None]
  - FEELING ABNORMAL [None]
  - MUSCULAR WEAKNESS [None]
